FAERS Safety Report 24647728 (Version 1)
Quarter: 2024Q4

REPORT INFORMATION
  Report Type: Spontaneous
  Country: US (occurrence: US)
  Receive Date: 20241121
  Receipt Date: 20241121
  Transmission Date: 20250115
  Serious: Yes (Life-Threatening, Other)
  Sender: PFIZER
  Company Number: US-PFIZER INC-PV202400150385

PATIENT
  Age: 76 Year
  Sex: Female

DRUGS (2)
  1. BEVACIZUMAB [Suspect]
     Active Substance: BEVACIZUMAB
     Indication: Hepatocellular carcinoma
     Dosage: EIGHT CYCLES
     Dates: start: 202303, end: 202310
  2. ATEZOLIZUMAB [Concomitant]
     Active Substance: ATEZOLIZUMAB
     Indication: Hepatocellular carcinoma
     Dosage: EIGHT CYCLES
     Dates: start: 202303, end: 202310

REACTIONS (2)
  - Renal-limited thrombotic microangiopathy [Recovered/Resolved]
  - Off label use [Unknown]

NARRATIVE: CASE EVENT DATE: 20230301
